FAERS Safety Report 4337212-1 (Version None)
Quarter: 2004Q2

REPORT INFORMATION
  Report Type: 
  Country: None (occurrence: None)
  Receive Date: 20040401
  Receipt Date: 20030908
  Transmission Date: 20050107
  Serious: Yes (Life-Threatening)
  Sender: FDA-Public Use
  Company Number: PHEH2003US06211

PATIENT
  Age: 55 Year
  Sex: Female
  Weight: 68 kg

DRUGS (1)
  1. VIVELLE-DOT [Suspect]

REACTIONS (3)
  - DEEP VEIN THROMBOSIS [None]
  - ERYTHEMA [None]
  - PAIN IN EXTREMITY [None]
